FAERS Safety Report 4286552-3 (Version None)
Quarter: 2004Q1

REPORT INFORMATION
  Report Type: 
  Country: None (occurrence: None)
  Receive Date: 20040204
  Receipt Date: 20031127
  Transmission Date: 20041129
  Serious: No
  Sender: FDA-Public Use
  Company Number: 2003AP04293

PATIENT
  Age: 78 Year
  Sex: Male

DRUGS (4)
  1. BUPIVACAINE [Suspect]
     Indication: SPINAL ANAESTHESIA
     Dosage: 17.5 MG IT
     Route: 037
  2. EPINEPHRINE [Suspect]
     Indication: ANAESTHESIA
     Dosage: 100 UG
  3. MIDAZOLAM HCL [Suspect]
     Indication: ANAESTHESIA
     Dosage: 1 MG IV
     Route: 042
  4. MORPHINE [Suspect]
     Indication: ANAESTHESIA
     Dosage: 150 UG

REACTIONS (8)
  - AGITATION [None]
  - ANAESTHESIA [None]
  - ANAESTHETIC COMPLICATION NEUROLOGICAL [None]
  - COMA [None]
  - HYPOMAGNESAEMIA [None]
  - METABOLIC ENCEPHALOPATHY [None]
  - MYOCLONUS [None]
  - RENAL FAILURE CHRONIC [None]
